FAERS Safety Report 8766528 (Version 1)
Quarter: 2012Q4

REPORT INFORMATION
  Report Type: 
  Country: GB (occurrence: GB)
  Receive Date: 20120905
  Receipt Date: 20120905
  Transmission Date: 20130627
  Serious: Yes (Other)
  Sender: FDA-Public Use
  Company Number: GB-TEVA-356053ISR

PATIENT
  Age: 44 Year
  Sex: Female
  Weight: 104 kg

DRUGS (11)
  1. METFORMIN [Suspect]
     Dates: start: 20120509
  2. CITALOPRAM [Concomitant]
     Dates: start: 20120328
  3. VENTOLIN [Concomitant]
     Dates: start: 20120420
  4. RAMIPRIL [Concomitant]
     Dates: start: 20120426
  5. DOXAZOSIN [Concomitant]
     Dates: start: 20120509
  6. AMLOSTIN [Concomitant]
     Dates: start: 20120509
  7. BENDROFLUMETHIAZIDE [Concomitant]
     Dates: start: 20120509
  8. SIMVASTATIN [Concomitant]
     Dates: start: 20120510, end: 20120607
  9. CO-CODAMOL [Concomitant]
     Dates: start: 20120725
  10. BUDESONIDE [Concomitant]
     Dates: start: 20120725, end: 20120726
  11. ATORVASTATIN [Concomitant]
     Dates: start: 20120814

REACTIONS (1)
  - Asthma [Recovered/Resolved]
